FAERS Safety Report 4702879-2 (Version None)
Quarter: 2005Q2

REPORT INFORMATION
  Report Type: 
  Country: None (occurrence: None)
  Receive Date: 20050629
  Receipt Date: 20050617
  Transmission Date: 20051028
  Serious: Yes (Other)
  Sender: FDA-Public Use
  Company Number: GB-JNJFOC-20050604826

PATIENT
  Age: 40 Year
  Sex: Male

DRUGS (5)
  1. TRAMADOL HCL [Suspect]
     Route: 049
  2. TRAMADOL HCL [Suspect]
     Route: 049
  3. TRAMADOL HCL [Suspect]
     Indication: BACK PAIN
     Route: 049
  4. AMITRIPTYLINE HCL [Interacting]
     Indication: DRUG USE FOR UNKNOWN INDICATION
     Route: 065
  5. GABAPENTIN [Concomitant]
     Route: 065

REACTIONS (2)
  - DRUG INTERACTION [None]
  - DYSTONIA [None]
